FAERS Safety Report 16283426 (Version 1)
Quarter: 2019Q2

REPORT INFORMATION
  Report Type: Spontaneous
  Country: CA (occurrence: CA)
  Receive Date: 20190507
  Receipt Date: 20190507
  Transmission Date: 20190711
  Serious: Yes (Life-Threatening)
  Sender: FDA-Public Use
  Company Number: CA-MYLANLABS-2019M1043552

PATIENT
  Age: 66 Year
  Sex: Female
  Weight: 54 kg

DRUGS (19)
  1. EPIVAL [Suspect]
     Active Substance: DIVALPROEX SODIUM
     Indication: DEPRESSION
     Dosage: UNK
  2. RISPERDAL [Interacting]
     Active Substance: RISPERIDONE
     Indication: DEPRESSION
     Dosage: UNK
     Route: 065
  3. VALPROATE SEMISODIUM [Interacting]
     Active Substance: DIVALPROEX SODIUM
     Indication: DEPRESSION
     Dosage: UNK
  4. VALPROATE SEMISODIUM [Interacting]
     Active Substance: DIVALPROEX SODIUM
     Indication: DEPRESSION
     Dosage: UNK
  5. VALPROATE SEMISODIUM [Interacting]
     Active Substance: DIVALPROEX SODIUM
     Indication: ANXIETY
  6. ABILIFY [Interacting]
     Active Substance: ARIPIPRAZOLE
     Indication: DEPRESSION
     Route: 065
  7. RISPERDAL [Interacting]
     Active Substance: RISPERIDONE
     Indication: DEPRESSION
     Dosage: UNK
  8. VALPROATE SEMISODIUM [Interacting]
     Active Substance: DIVALPROEX SODIUM
     Indication: ANXIETY
  9. EPIVAL [Interacting]
     Active Substance: DIVALPROEX SODIUM
     Indication: DEPRESSION
     Dosage: UNK
     Route: 065
  10. EPIVAL [Interacting]
     Active Substance: DIVALPROEX SODIUM
     Indication: ANXIETY
  11. SODIUM VALPROATE [Interacting]
     Active Substance: VALPROATE SODIUM
     Indication: DEPRESSION
     Dosage: UNK
  12. SODIUM VALPROATE [Interacting]
     Active Substance: VALPROATE SODIUM
     Indication: DEPRESSION
     Dosage: UNK
  13. EPIVAL [Interacting]
     Active Substance: DIVALPROEX SODIUM
     Indication: ANXIETY
  14. ABILIFY [Interacting]
     Active Substance: ARIPIPRAZOLE
     Indication: ANXIETY
  15. CITALOPRAM HYDROCHLORIDE [Interacting]
     Active Substance: CITALOPRAM HYDROCHLORIDE
     Indication: PRODUCT USED FOR UNKNOWN INDICATION
     Dosage: UNK
     Route: 065
  16. SODIUM VALPROATE [Interacting]
     Active Substance: VALPROATE SODIUM
     Indication: ANXIETY
  17. SODIUM VALPROATE [Interacting]
     Active Substance: VALPROATE SODIUM
     Indication: ANXIETY
  18. RISPERDAL [Interacting]
     Active Substance: RISPERIDONE
     Indication: ANXIETY
  19. RISPERDAL [Interacting]
     Active Substance: RISPERIDONE
     Indication: ANXIETY

REACTIONS (6)
  - Drug interaction [Unknown]
  - Product use in unapproved indication [Unknown]
  - Alopecia [Unknown]
  - Weight increased [Unknown]
  - Off label use [Unknown]
  - Hypersomnia [Unknown]
